FAERS Safety Report 9701956 (Version 1)
Quarter: 2013Q4

REPORT INFORMATION
  Report Type: Spontaneous
  Country: US (occurrence: None)
  Receive Date: 20131120
  Receipt Date: 20131120
  Transmission Date: 20140711
  Serious: No
  Sender: FDA-Public Use
  Company Number: None

PATIENT
  Sex: Male
  Weight: 120 kg

DRUGS (3)
  1. RISPERDAL [Suspect]
     Indication: DEMENTIA
     Dosage: 2 OR 3 TIMES A DAY
  2. RISPERDAL [Suspect]
     Indication: PANIC ATTACK
     Dosage: 2 OR 3 TIMES A DAY
  3. RISPERDAL [Suspect]
     Indication: SCHIZOPHRENIA
     Dosage: 2 OR 3 TIMES A DAY

REACTIONS (4)
  - Hallucination, visual [None]
  - Chest pain [None]
  - Hallucination, auditory [None]
  - Sleep terror [None]
